FAERS Safety Report 10096112 (Version 3)
Quarter: 2015Q3

REPORT INFORMATION
  Report Type: Report from Study
  Country: CA (occurrence: CA)
  Receive Date: 20140422
  Receipt Date: 20150706
  Transmission Date: 20151125
  Serious: Yes (Other)
  Sender: FDA-Public Use
  Company Number: CA-BRISTOL-MYERS SQUIBB COMPANY-20629176

PATIENT
  Age: 59 Year
  Sex: Male

DRUGS (4)
  1. NAPROXEN. [Concomitant]
     Active Substance: NAPROXEN
     Indication: PRODUCT USED FOR UNKNOWN INDICATION
     Route: 065
  2. LEFLUNOMIDE. [Concomitant]
     Active Substance: LEFLUNOMIDE
     Indication: PRODUCT USED FOR UNKNOWN INDICATION
     Route: 065
  3. ABATACEPT [Suspect]
     Active Substance: ABATACEPT
     Indication: RHEUMATOID ARTHRITIS
     Dosage: 1000 MG, Q4WK
     Route: 042
     Dates: start: 20140212
  4. EXTERNAL-PREDNISONE [Concomitant]
     Indication: PRODUCT USED FOR UNKNOWN INDICATION
     Route: 065

REACTIONS (10)
  - Productive cough [Unknown]
  - Pulmonary fibrosis [Unknown]
  - Cataract [Unknown]
  - Sputum discoloured [Unknown]
  - Pyrexia [Unknown]
  - Night sweats [Unknown]
  - Rhinorrhoea [Unknown]
  - Peripheral swelling [Unknown]
  - Cataract operation [Unknown]
  - Tremor [Unknown]

NARRATIVE: CASE EVENT DATE: 20140408
